FAERS Safety Report 4332575-5 (Version None)
Quarter: 2004Q2

REPORT INFORMATION
  Report Type: 
  Country: None (occurrence: None)
  Receive Date: 20040401
  Receipt Date: 20040322
  Transmission Date: 20050107
  Serious: Yes (Hospitalization, Disabling, Other)
  Sender: FDA-Public Use
  Company Number: 2004204708ES

PATIENT
  Age: 44 Year
  Sex: Male

DRUGS (1)
  1. CAVERJECT [Suspect]
     Dosage: 10 UG, INT CORP CAVERN

REACTIONS (8)
  - ERECTILE DYSFUNCTION [None]
  - INJECTION SITE ABSCESS [None]
  - MEDICATION ERROR [None]
  - PENILE ABSCESS [None]
  - PENILE ULCERATION [None]
  - PEYRONIE'S DISEASE [None]
  - PYREXIA [None]
  - SELF-MEDICATION [None]
